FAERS Safety Report 12483092 (Version 1)
Quarter: 2016Q2

REPORT INFORMATION
  Report Type: Spontaneous
  Country: CA (occurrence: CA)
  Receive Date: 20160620
  Receipt Date: 20160620
  Transmission Date: 20160815
  Serious: Yes (Other)
  Sender: FDA-Public Use
  Company Number: CA-APOTEX-2016AP009184

PATIENT
  Age: 36 Year
  Sex: Male

DRUGS (11)
  1. APO-CHLORPROMAZINE [Suspect]
     Active Substance: CHLORPROMAZINE
     Indication: SCHIZOPHRENIA
     Dosage: UNK, UNKNOWN
     Route: 065
  2. APO-LOXAPINE [Suspect]
     Active Substance: LOXAPINE SUCCINATE
     Indication: SCHIZOPHRENIA
     Dosage: UNK, UNKNOWN
     Route: 065
  3. APO-BENZTROPINE [Suspect]
     Active Substance: BENZTROPINE
     Indication: SCHIZOPHRENIA
     Dosage: 2 MG/DAY
     Route: 065
  4. APO-HALOPERIDOL [Suspect]
     Active Substance: HALOPERIDOL
     Indication: SCHIZOPHRENIA
     Dosage: UNK UNK, UNKNOWN
     Route: 065
  5. APO-CLOZAPINE [Suspect]
     Active Substance: CLOZAPINE
     Dosage: 200 MG/DAY
     Route: 065
  6. APO-CLOZAPINE [Suspect]
     Active Substance: CLOZAPINE
     Dosage: UNK, UNKNOWN
     Route: 065
  7. APO-BENZTROPINE [Suspect]
     Active Substance: BENZTROPINE
     Dosage: UNK
     Route: 065
  8. APO-QUETIAPINE [Suspect]
     Active Substance: QUETIAPINE
     Indication: SCHIZOPHRENIA
     Dosage: UNK, UNKNOWN
     Route: 065
  9. APO-CLOZAPINE [Suspect]
     Active Substance: CLOZAPINE
     Indication: SCHIZOPHRENIA
     Dosage: UP TO 300 MG/DAY
     Route: 065
  10. OLANZAPINE. [Suspect]
     Active Substance: OLANZAPINE
     Indication: SCHIZOPHRENIA
     Dosage: UNK UNK, UNKNOWN
     Route: 065
  11. APO-CLOZAPINE [Suspect]
     Active Substance: CLOZAPINE
     Dosage: 400 MG/DAY
     Route: 065

REACTIONS (12)
  - Schizophrenia [Not Recovered/Not Resolved]
  - Hypocalcaemia [Recovered/Resolved]
  - Drug ineffective [Not Recovered/Not Resolved]
  - Treatment failure [Not Recovered/Not Resolved]
  - Condition aggravated [Unknown]
  - Myoclonus [Unknown]
  - Muscle twitching [Unknown]
  - Generalised tonic-clonic seizure [Unknown]
  - Seizure [Unknown]
  - Parkinsonism [Not Recovered/Not Resolved]
  - Hypoparathyroidism [Recovered/Resolved]
  - Tardive dyskinesia [Unknown]
